FAERS Safety Report 5188095-1 (Version None)
Quarter: 2006Q4

REPORT INFORMATION
  Report Type: 
  Country: None (occurrence: None)
  Receive Date: 20061214
  Receipt Date: 20061214
  Transmission Date: 20070319
  Serious: Yes (Life-Threatening, Hospitalization)
  Sender: FDA-Public Use
  Company Number: None

PATIENT
  Age: 92 Year
  Sex: Male

DRUGS (7)
  1. ASPIRIN [Suspect]
     Indication: CEREBROVASCULAR ACCIDENT PROPHYLAXIS
     Dosage: 81 MG PO QDAY   FEW MONTHS
     Route: 048
  2. PLAVIX [Suspect]
     Dosage: 75 MG PO QD   FEW MONTHS
     Route: 048
  3. HYDROCHLOROTHIAZIDE [Concomitant]
  4. PLENDIL [Concomitant]
  5. PREVACID [Concomitant]
  6. FOLIC ACID [Concomitant]
  7. LACTOSE [Concomitant]

REACTIONS (3)
  - FAECES DISCOLOURED [None]
  - MENTAL STATUS CHANGES [None]
  - VOMITING [None]
